FAERS Safety Report 9379680 (Version 1)
Quarter: 2013Q3

REPORT INFORMATION
  Report Type: Report from Study
  Country: FR (occurrence: FR)
  Receive Date: 20130702
  Receipt Date: 20130702
  Transmission Date: 20140515
  Serious: Yes (Other)
  Sender: FDA-Public Use
  Company Number: FR-009507513-1306FRA012750

PATIENT
  Age: 55 Year
  Sex: Male
  Weight: 83 kg

DRUGS (8)
  1. BLINDED PEGINTERFERON ALFA-2B [Suspect]
     Indication: HEPATITIS C
     Dosage: 50 MICROGRAM, UNKNOWN
     Route: 058
     Dates: start: 20081104
  2. BLINDED PLACEBO [Suspect]
     Indication: HEPATITIS C
     Dosage: 50 MICROGRAM, UNKNOWN
     Route: 058
     Dates: start: 20081104
  3. BLINDED POST TRIAL THERAPY [Suspect]
     Indication: HEPATITIS C
     Dosage: 50 MICROGRAM, UNKNOWN
     Route: 058
     Dates: start: 20081104
  4. BLINDED POST TRIAL THERAPY [Suspect]
     Indication: HEPATITIS C
     Dosage: 50 MICROGRAM, UNKNOWN
     Route: 058
     Dates: start: 20081104
  5. BLINDED PRE TRIAL THERAPY [Suspect]
     Indication: HEPATITIS C
     Dosage: 50 MICROGRAM, UNKNOWN
     Route: 058
     Dates: start: 20081104
  6. BLINDED PRE TRIAL THERAPY [Suspect]
     Indication: HEPATITIS C
     Dosage: 50 MICROGRAM, UNKNOWN
     Route: 058
     Dates: start: 20081104
  7. BLINDED RIBAVIRIN [Suspect]
     Indication: HEPATITIS C
     Dosage: 50 MICROGRAM, UNKNOWN
     Route: 058
     Dates: start: 20081104
  8. BLINDED THERAPY [Suspect]
     Dosage: 1200 MG, UNKNOWN
     Route: 048
     Dates: start: 20081104

REACTIONS (1)
  - Neutropenia [Recovered/Resolved]
